FAERS Safety Report 8925078 (Version 1)
Quarter: 2012Q4

REPORT INFORMATION
  Report Type: 
  Country: US (occurrence: US)
  Receive Date: 20121126
  Receipt Date: 20121126
  Transmission Date: 20130627
  Serious: Yes (Other)
  Sender: FDA-Public Use
  Company Number: US-BRISTOL-MYERS SQUIBB COMPANY-17135757

PATIENT
  Age: 69 Year
  Sex: Male

DRUGS (1)
  1. ORENCIA FOR INJ 250 MG/VIAL [Suspect]
     Indication: RHEUMATOID ARTHRITIS
     Dosage: last infusion was on 25OCT2012 
Orencia IV ^4 vials^
     Route: 042

REACTIONS (1)
  - Cerebrovascular accident [Unknown]
